FAERS Safety Report 8798340 (Version 1)
Quarter: 2012Q4

REPORT INFORMATION
  Report Type: 
  Country: JP (occurrence: JP)
  Receive Date: 20120920
  Receipt Date: 20120920
  Transmission Date: 20130627
  Serious: Yes (Other)
  Sender: FDA-Public Use
  Company Number: JP-ELI_LILLY_AND_COMPANY-JP201205009977

PATIENT
  Age: 75 Year
  Sex: Female

DRUGS (1)
  1. FORTEO [Suspect]
     Route: 058

REACTIONS (4)
  - Cardiac disorder [Not Recovered/Not Resolved]
  - Eye pain [Recovered/Resolved]
  - Abnormal sensation in eye [Recovering/Resolving]
  - Muscle twitching [Recovered/Resolved]
